FAERS Safety Report 22284305 (Version 1)
Quarter: 2023Q2

REPORT INFORMATION
  Report Type: Spontaneous
  Country: US (occurrence: US)
  Receive Date: 20230504
  Receipt Date: 20230504
  Transmission Date: 20230721
  Serious: No
  Sender: FDA-Public Use
  Company Number: US-SA-SAC20230502001545

PATIENT
  Sex: Female

DRUGS (14)
  1. DUPIXENT [Suspect]
     Active Substance: DUPILUMAB
     Indication: Asthma
     Dosage: 300 MG, QOW
     Route: 058
     Dates: start: 20220618
  2. ATORVASTATIN [Concomitant]
     Active Substance: ATORVASTATIN
  3. AZITHROMYCIN [Concomitant]
     Active Substance: AZITHROMYCIN
  4. BREO ELLIPTA [Concomitant]
     Active Substance: FLUTICASONE FUROATE\VILANTEROL TRIFENATATE
  5. BRILINTA [Concomitant]
     Active Substance: TICAGRELOR
  6. CARVEDILOL [Concomitant]
     Active Substance: CARVEDILOL
  7. EPINEPHRINE [Concomitant]
     Active Substance: EPINEPHRINE
  8. LOSARTAN [Concomitant]
     Active Substance: LOSARTAN
  9. MESALAMINE [Concomitant]
     Active Substance: MESALAMINE
     Dosage: 50MG
  10. MOMETASONE [Concomitant]
     Active Substance: MOMETASONE
  11. PREDNISONE [Concomitant]
     Active Substance: PREDNISONE
  12. TRELEGY ELLIPTA [Concomitant]
     Active Substance: FLUTICASONE FUROATE\UMECLIDINIUM BROMIDE\VILANTEROL TRIFENATATE
  13. ZINC SULFATE [Concomitant]
     Active Substance: ZINC SULFATE
  14. IRON [Concomitant]
     Active Substance: IRON
     Indication: Iron deficiency anaemia

REACTIONS (1)
  - COVID-19 [Unknown]
